FAERS Safety Report 21871162 (Version 1)
Quarter: 2023Q1

REPORT INFORMATION
  Report Type: Spontaneous
  Country: CN (occurrence: CN)
  Receive Date: 20230117
  Receipt Date: 20230117
  Transmission Date: 20230418
  Serious: Yes (Hospitalization, Other)
  Sender: FDA-Public Use
  Company Number: CN-MLMSERVICE-20230105-4024345-1

PATIENT
  Age: 56 Year
  Sex: Male

DRUGS (6)
  1. METHYLPREDNISOLONE [Suspect]
     Active Substance: METHYLPREDNISOLONE
     Indication: Immunosuppression
     Dosage: DURING THE ANHEPATIC PHASE
  2. SIROLIMUS [Suspect]
     Active Substance: SIROLIMUS
     Indication: Immunosuppression
     Dosage: UNK
  3. BASILIXIMAB [Suspect]
     Active Substance: BASILIXIMAB
     Indication: Immunosuppressant drug therapy
     Dosage: DURING THE ANHEPATIC PHASE
  4. BASILIXIMAB [Suspect]
     Active Substance: BASILIXIMAB
     Dosage: ON POD 4
  5. TACROLIMUS [Suspect]
     Active Substance: TACROLIMUS
     Indication: Immunosuppressant drug therapy
     Dosage: 3 MG, 2X/DAY (FREQ:12 H;)
  6. MYCOPHENOLATE MOFETIL [Suspect]
     Active Substance: MYCOPHENOLATE MOFETIL
     Indication: Immunosuppressant drug therapy
     Dosage: 500 MG, 2X/DAY (FREQ:12 H)

REACTIONS (6)
  - Human herpesvirus 6 infection [Recovered/Resolved]
  - Central nervous system lesion [Recovered/Resolved]
  - Central nervous system infection [Recovered/Resolved]
  - Immunosuppressant drug level increased [Unknown]
  - Encephalitis [Recovered/Resolved]
  - Seizure [Recovered/Resolved]
